FAERS Safety Report 9063796 (Version 2)
Quarter: 2013Q1

REPORT INFORMATION
  Report Type: Spontaneous
  Country: FR (occurrence: FR)
  Receive Date: 20130129
  Receipt Date: 20130129
  Transmission Date: 20140127
  Serious: Yes (Hospitalization, Congenital Anomaly, Other)
  Sender: FDA-Public Use
  Company Number: FR-RB-JP/980427/25

PATIENT
  Sex: Female

DRUGS (1)
  1. SUBUTEX [Suspect]
     Indication: DRUG DEPENDENCE
     Dosage: MOTHERS DOSE 8MG DAILY SUBLINGUALLY
     Route: 064
     Dates: start: 19970201, end: 19971123

REACTIONS (4)
  - Status epilepticus [Recovered/Resolved with Sequelae]
  - Dysmorphism [Recovered/Resolved with Sequelae]
  - Hydrocephalus [Recovered/Resolved with Sequelae]
  - Foetal exposure during pregnancy [Recovered/Resolved]
